FAERS Safety Report 17050493 (Version 1)
Quarter: 2019Q4

REPORT INFORMATION
  Report Type: Spontaneous
  Country: US (occurrence: US)
  Receive Date: 20191119
  Receipt Date: 20191119
  Transmission Date: 20200122
  Serious: Yes (Other)
  Sender: FDA-Public Use
  Company Number: US-BEH-2019109606

PATIENT
  Sex: Male

DRUGS (2)
  1. HUMATE-P [Suspect]
     Active Substance: HUMAN COAGULATION FACTOR VIII/VON WILLEBRAND FACTOR COMPLEX
     Indication: ACQUIRED HAEMOPHILIA
     Dosage: 472 RCOF UNITS, THREE TIMES A WEEK
     Route: 042
     Dates: start: 20170415
  2. HUMATE-P [Suspect]
     Active Substance: HUMAN COAGULATION FACTOR VIII/VON WILLEBRAND FACTOR COMPLEX
     Indication: ACQUIRED HAEMOPHILIA
     Dosage: 472 RCOF UNITS, THREE TIMES A WEEK
     Route: 042
     Dates: start: 20170415

REACTIONS (3)
  - Contusion [Recovering/Resolving]
  - Traumatic haemorrhage [Recovering/Resolving]
  - Fall [Unknown]
